FAERS Safety Report 15456669 (Version 1)
Quarter: 2018Q4

REPORT INFORMATION
  Report Type: Spontaneous
  Country: JP (occurrence: JP)
  Receive Date: 20181002
  Receipt Date: 20181002
  Transmission Date: 20190204
  Serious: Yes (Hospitalization)
  Sender: FDA-Public Use
  Company Number: JP-PFIZER INC-2018389821

PATIENT
  Age: 70 Year
  Sex: Male

DRUGS (2)
  1. GABAPEN [Suspect]
     Active Substance: GABAPENTIN
     Indication: DELIRIUM
     Dosage: UNK
  2. SODIUM VALPROATE [Concomitant]
     Active Substance: VALPROATE SODIUM
     Indication: AGITATION
     Dosage: UNK

REACTIONS (3)
  - Pneumonia [Unknown]
  - Sputum retention [Unknown]
  - Product use in unapproved indication [Unknown]
